FAERS Safety Report 6781254-3 (Version None)
Quarter: 2010Q2

REPORT INFORMATION
  Report Type: 
  Country: None (occurrence: None)
  Receive Date: 20100621
  Receipt Date: 20100608
  Transmission Date: 20101027
  Serious: Yes (Other)
  Sender: FDA-Public Use
  Company Number: PHHY2010BR37963

PATIENT
  Age: 50 Year
  Sex: Male
  Weight: 76 kg

DRUGS (4)
  1. STALEVO 100 [Suspect]
     Indication: PARKINSON'S DISEASE
     Dosage: 200 MG, BID
     Route: 048
     Dates: start: 20050101
  2. AKINETON [Concomitant]
     Indication: TREMOR
     Dosage: 2 MG, BID
     Route: 048
     Dates: start: 19990101, end: 20100401
  3. AKINETON [Concomitant]
     Indication: PARKINSON'S DISEASE
  4. CARBIDOPA + LEVODOPA [Concomitant]
     Indication: PARKINSON'S DISEASE
     Dosage: 0.5 MG, 5 TIMES DAILY
     Route: 048
     Dates: start: 19990101

REACTIONS (4)
  - ABASIA [None]
  - DRUG INEFFECTIVE [None]
  - MOBILITY DECREASED [None]
  - PARALYSIS [None]
